FAERS Safety Report 19169788 (Version 9)
Quarter: 2023Q1

REPORT INFORMATION
  Report Type: Spontaneous
  Country: CA (occurrence: CA)
  Receive Date: 20210422
  Receipt Date: 20230207
  Transmission Date: 20230417
  Serious: Yes (Hospitalization, Other)
  Sender: FDA-Public Use
  Company Number: CA-PFIZER INC-2021353644

PATIENT
  Age: 65 Year
  Sex: Female
  Weight: 75 kg

DRUGS (6)
  1. RUXIENCE [Suspect]
     Active Substance: RITUXIMAB-PVVR
     Indication: Rheumatoid arthritis
     Dosage: 1000MG DAY 1 AND DAY 15
     Route: 042
     Dates: start: 20210305, end: 20210319
  2. RUXIENCE [Suspect]
     Active Substance: RITUXIMAB-PVVR
     Dosage: 1000MG DAY 1 AND DAY 15
     Route: 042
     Dates: start: 20210319, end: 20210319
  3. RUXIENCE [Suspect]
     Active Substance: RITUXIMAB-PVVR
     Dosage: 1000MG DAY 1 AND DAY 15,ALTERNATIVE 2 HOUR INFUSION
     Route: 042
     Dates: start: 20210921, end: 20211006
  4. RUXIENCE [Suspect]
     Active Substance: RITUXIMAB-PVVR
     Dosage: 1000MG DAY 1 AND DAY 15,ALTERNATIVE 2 HOUR INFUSION
     Route: 042
     Dates: start: 20211006
  5. RUXIENCE [Suspect]
     Active Substance: RITUXIMAB-PVVR
     Dosage: 1000 MG, DAY 1 AND DAY 15,- DISCONTINUED
     Route: 042
     Dates: start: 20220413, end: 20220427
  6. RUXIENCE [Suspect]
     Active Substance: RITUXIMAB-PVVR
     Dosage: 1000 MG, DAY 1 AND DAY 15
     Route: 042
     Dates: start: 20220427

REACTIONS (11)
  - Stress [Not Recovered/Not Resolved]
  - Anxiety [Not Recovered/Not Resolved]
  - Paranoia [Not Recovered/Not Resolved]
  - Peripheral swelling [Not Recovered/Not Resolved]
  - Weight increased [Unknown]
  - Rheumatoid arthritis [Not Recovered/Not Resolved]
  - Drug ineffective [Unknown]
  - Hypertension [Unknown]
  - Tremor [Not Recovered/Not Resolved]
  - Off label use [Unknown]
  - Intentional product use issue [Unknown]

NARRATIVE: CASE EVENT DATE: 20210301
